FAERS Safety Report 16012044 (Version 2)
Quarter: 2019Q1

REPORT INFORMATION
  Report Type: Spontaneous
  Country: BG (occurrence: BG)
  Receive Date: 20190227
  Receipt Date: 20190228
  Transmission Date: 20190418
  Serious: Yes (Other)
  Sender: FDA-Public Use
  Company Number: PHHY2019BG041928

PATIENT
  Age: 63 Year
  Sex: Male

DRUGS (9)
  1. SINTROM [Suspect]
     Active Substance: ACENOCOUMAROL
     Indication: CARDIAC FAILURE
     Dosage: UNK
     Route: 065
  2. TORASEMIDE [Suspect]
     Active Substance: TORSEMIDE
     Dosage: 200 MG, Q12H
     Route: 065
  3. GLICLAZIDE [Suspect]
     Active Substance: GLICLAZIDE
     Indication: CARDIAC FAILURE
     Dosage: 60 MG, QD
     Route: 065
  4. SPIRONOLACTONE. [Suspect]
     Active Substance: SPIRONOLACTONE
     Indication: CARDIAC FAILURE
     Dosage: 25 MG, UNK
     Route: 065
  5. HUMAN INSULIN [Concomitant]
     Active Substance: INSULIN HUMAN
     Indication: TYPE 2 DIABETES MELLITUS
     Dosage: 10 IU, UNK
     Route: 065
  6. TORASEMIDE [Suspect]
     Active Substance: TORSEMIDE
     Indication: CARDIAC FAILURE
     Dosage: 10 MG, Q12H
     Route: 065
  7. ACETYLSALICYLIC ACID [Suspect]
     Active Substance: ASPIRIN
     Indication: CARDIAC FAILURE
     Dosage: 100 MG, UNK
     Route: 065
  8. BISOPROLOL [Suspect]
     Active Substance: BISOPROLOL
     Indication: CARDIAC FAILURE
     Dosage: 5 MG, UNK
     Route: 065
  9. PERINDOPRIL [Suspect]
     Active Substance: PERINDOPRIL
     Indication: CARDIAC FAILURE
     Dosage: 4 MG, UNK
     Route: 065

REACTIONS (12)
  - Cardiac failure [Recovering/Resolving]
  - Rash [Recovering/Resolving]
  - Microalbuminuria [Unknown]
  - Orthopnoea [Unknown]
  - Drug ineffective [Unknown]
  - Skin necrosis [Recovered/Resolved]
  - Blister [Recovered/Resolved]
  - Haematuria [Unknown]
  - Glomerular filtration rate decreased [Unknown]
  - Proteinuria [Unknown]
  - Petechiae [Recovered/Resolved]
  - Skin lesion [Recovering/Resolving]
